FAERS Safety Report 5724508-1 (Version None)
Quarter: 2008Q2

REPORT INFORMATION
  Report Type: 
  Country: None (occurrence: None)
  Receive Date: 20080501
  Receipt Date: 20080423
  Transmission Date: 20081010
  Serious: Yes (Hospitalization)
  Sender: FDA-Public Use
  Company Number: GB-RANBAXY-2008RR-14651

PATIENT

DRUGS (4)
  1. FLUOXETINE [Suspect]
  2. RISPERDAL [Suspect]
     Dosage: 1 MG, BID
     Route: 048
  3. RISPERDAL [Suspect]
     Dosage: 2 MG, BID
     Route: 048
  4. QUETIAPINE [Concomitant]

REACTIONS (5)
  - BLOOD POTASSIUM DECREASED [None]
  - BRAIN OEDEMA [None]
  - CONVULSION [None]
  - HYPONATRAEMIA [None]
  - SYNCOPE [None]
